FAERS Safety Report 5926544-9 (Version None)
Quarter: 2008Q4

REPORT INFORMATION
  Report Type: 
  Country: None (occurrence: None)
  Receive Date: 20081022
  Receipt Date: 20081014
  Transmission Date: 20090506
  Serious: Yes (Hospitalization)
  Sender: FDA-Public Use
  Company Number: US-ELI_LILLY_AND_COMPANY-US200810003441

PATIENT
  Sex: Female

DRUGS (18)
  1. CYMBALTA [Suspect]
     Indication: DIABETIC NEUROPATHY
     Dosage: 90 MG, UNK
     Dates: start: 20080801
  2. INSULIN [Concomitant]
  3. NEXIUM [Concomitant]
  4. METOPROLOL TARTRATE [Concomitant]
  5. ERYTHROMYCIN [Concomitant]
  6. ZETIA [Concomitant]
  7. DURAGESIC-100 [Concomitant]
     Indication: PAIN
  8. MULTI-VITAMIN [Concomitant]
  9. REQUIP [Concomitant]
  10. WARFARIN SODIUM [Concomitant]
  11. AVALIDE [Concomitant]
  12. BUMEX [Concomitant]
  13. DEPO-PROVERA [Concomitant]
  14. KEPPRA [Concomitant]
  15. PHENERGAN HCL [Concomitant]
  16. POTASSIUM CHLORIDE [Concomitant]
  17. TIMOPTIC [Concomitant]
  18. TRAVATAN [Concomitant]

REACTIONS (3)
  - DIABETIC GASTROPARESIS [None]
  - TACHYCARDIA [None]
  - VOMITING [None]
